FAERS Safety Report 9522417 (Version 1)
Quarter: 2013Q1

REPORT INFORMATION
  Report Type: Spontaneous
  Country: US (occurrence: None)
  Receive Date: 20130305
  Receipt Date: 20130305
  Transmission Date: 20140127
  Serious: Yes (Hospitalization)
  Sender: FDA-Public Use
  Company Number: 163-21880-12033175

PATIENT
  Age: 65 Year
  Sex: Male

DRUGS (4)
  1. REVLIMID [Suspect]
     Indication: MYELODYSPLASTIC SYNDROME
     Dosage: 5 MG, DAILY X 21 DAYS, PO
     Route: 048
     Dates: start: 20120222
  2. PREDNISONE (PREDNISONE) (UNKNOWN) [Concomitant]
  3. HYDROXYUREA (HYDROXYCARBAMIDE) (UNKNOWN) [Concomitant]
  4. SIMETHICONE (DIMETICONE, ACTIVATED) (UNKNOWN) [Concomitant]

REACTIONS (2)
  - Fall [None]
  - Localised infection [None]
